FAERS Safety Report 6400459-4 (Version None)
Quarter: 2009Q4

REPORT INFORMATION
  Report Type: 
  Country: None (occurrence: None)
  Receive Date: 20091007
  Receipt Date: 20091007
  Transmission Date: 20100525
  Serious: Yes (Hospitalization)
  Sender: FDA-Public Use
  Company Number: None

PATIENT
  Age: 17 Year
  Sex: Female
  Weight: 68.4932 kg

DRUGS (2)
  1. YAZ [Suspect]
     Dates: start: 20090601, end: 20091005
  2. ACCUTANE [Suspect]
     Dates: start: 20090701, end: 20091005

REACTIONS (2)
  - CRYING [None]
  - PULMONARY EMBOLISM [None]
